FAERS Safety Report 7884922-5 (Version None)
Quarter: 2011Q4

REPORT INFORMATION
  Report Type: 
  Country: None (occurrence: None)
  Receive Date: 20111102
  Receipt Date: 20111026
  Transmission Date: 20120403
  Serious: No
  Sender: FDA-Public Use
  Company Number: US-B.I. PHARMACEUTICALS,INC./RIDGEFIELD-2011-BP-23186BP

PATIENT
  Sex: Female

DRUGS (7)
  1. DESICCATED THYROID [Concomitant]
  2. TRAMADOL HCL [Concomitant]
  3. PRADAXA [Suspect]
     Dates: end: 20110927
  4. NORCO [Concomitant]
  5. MORPHINE [Concomitant]
  6. AMITRIPTYLINE HCL [Concomitant]
  7. FLEXERIL [Concomitant]

REACTIONS (9)
  - ARTHRALGIA [None]
  - FLANK PAIN [None]
  - MYALGIA [None]
  - ABDOMINAL RIGIDITY [None]
  - CONTUSION [None]
  - ABDOMINAL DISTENSION [None]
  - ABDOMINAL PAIN LOWER [None]
  - PAIN IN EXTREMITY [None]
  - ABASIA [None]
